FAERS Safety Report 9768122 (Version 1)
Quarter: 2013Q4

REPORT INFORMATION
  Report Type: Spontaneous
  Country: US (occurrence: US)
  Receive Date: 20131217
  Receipt Date: 20131217
  Transmission Date: 20140711
  Serious: Yes (Hospitalization)
  Sender: FDA-Public Use
  Company Number: US-BAXTER-2013BAX049784

PATIENT
  Sex: Male
  Weight: 91.2 kg

DRUGS (2)
  1. DIANEAL LOW CALCIUM [Suspect]
     Indication: RENAL FAILURE CHRONIC
     Route: 033
     Dates: start: 20131113
  2. DIANEAL LOW CALCIUM [Suspect]
     Indication: RENAL FAILURE CHRONIC
     Route: 033
     Dates: start: 20131113

REACTIONS (4)
  - Dehydration [Recovering/Resolving]
  - Blood potassium decreased [Recovered/Resolved]
  - Peritoneal dialysis complication [Recovered/Resolved]
  - Wrong drug administered [Recovered/Resolved]
